FAERS Safety Report 8398553-4 (Version None)
Quarter: 2012Q2

REPORT INFORMATION
  Report Type: 
  Country: None (occurrence: None)
  Receive Date: 20120531
  Receipt Date: 20120528
  Transmission Date: 20120825
  Serious: Yes (Other)
  Sender: FDA-Public Use
  Company Number: CA-BAYER-2012-052326

PATIENT
  Age: 20 Year
  Sex: Female

DRUGS (2)
  1. YASMIN [Suspect]
     Dosage: UNK
     Dates: start: 20111201
  2. ASPIRIN [Concomitant]
     Dosage: UNK
     Dates: start: 20120526

REACTIONS (6)
  - MENORRHAGIA [None]
  - ABDOMINAL PAIN UPPER [None]
  - HEAT STROKE [None]
  - FEELING HOT [None]
  - NAUSEA [None]
  - FLATULENCE [None]
